FAERS Safety Report 13583817 (Version 1)
Quarter: 2017Q2

REPORT INFORMATION
  Report Type: Spontaneous
  Country: FR (occurrence: FR)
  Receive Date: 20170526
  Receipt Date: 20170526
  Transmission Date: 20170830
  Serious: Yes (Hospitalization, Disabling)
  Sender: FDA-Public Use
  Company Number: FR-ABBVIE-17K-056-1984633-00

PATIENT
  Age: 51 Year
  Sex: Female
  Weight: 55 kg

DRUGS (1)
  1. HUMIRA [Suspect]
     Active Substance: ADALIMUMAB
     Indication: PSORIATIC ARTHROPATHY
     Route: 058
     Dates: start: 201602, end: 20160621

REACTIONS (11)
  - Rheumatoid arthritis [Unknown]
  - Paradoxical drug reaction [Recovered/Resolved]
  - Synovial cyst [Unknown]
  - Psoriasis [Unknown]
  - Acanthosis [Unknown]
  - Drug ineffective [Unknown]
  - Parakeratosis [Unknown]
  - Fatigue [Unknown]
  - Pruritus [Unknown]
  - Middle insomnia [Unknown]
  - Lymphadenopathy [Unknown]

NARRATIVE: CASE EVENT DATE: 2016
